FAERS Safety Report 7552037-1 (Version None)
Quarter: 2011Q2

REPORT INFORMATION
  Report Type: 
  Country: None (occurrence: None)
  Receive Date: 20110609
  Receipt Date: 20110524
  Transmission Date: 20111010
  Serious: Yes (Life-Threatening, Hospitalization)
  Sender: FDA-Public Use
  Company Number: 2011MA006396

PATIENT
  Age: 82 Year
  Sex: Male

DRUGS (9)
  1. IMIDAPRIL HYDROCHLORIDE [Concomitant]
  2. ISOSORBIDE MONONITRATE [Concomitant]
  3. BICALUTAMIDE [Suspect]
     Indication: PROSTATE CANCER
     Dosage: 80 MG; QD;
  4. KANZOU [Concomitant]
  5. DISOPYRAMIDE [Concomitant]
  6. ?UTOPRAZEPAM [Concomitant]
  7. SILODOSIN [Concomitant]
  8. PRAVASTATIN SODIUM [Concomitant]
  9. AMLODIPINE BESYLATE [Concomitant]

REACTIONS (12)
  - TORSADE DE POINTES [None]
  - HYPOKALAEMIA [None]
  - RALES [None]
  - RESPIRATORY RATE INCREASED [None]
  - BLOOD PH INCREASED [None]
  - DYSPNOEA [None]
  - VENTRICULAR TACHYCARDIA [None]
  - COUGH [None]
  - PNEUMONIA BACTERIAL [None]
  - BODY TEMPERATURE INCREASED [None]
  - SPEECH DISORDER [None]
  - LOSS OF CONSCIOUSNESS [None]
